FAERS Safety Report 14146079 (Version 2)
Quarter: 2017Q4

REPORT INFORMATION
  Report Type: Spontaneous
  Country: US (occurrence: US)
  Receive Date: 20171031
  Receipt Date: 20171106
  Transmission Date: 20180321
  Serious: Yes (Other)
  Sender: FDA-Public Use
  Company Number: US-BAYER-2017-208825

PATIENT
  Sex: Male

DRUGS (1)
  1. GADAVIST [Suspect]
     Active Substance: GADOBUTROL
     Indication: IMAGING PROCEDURE
     Dosage: UNK UNK, ONCE
     Dates: start: 20171026

REACTIONS (6)
  - Chest discomfort [None]
  - Erythema [None]
  - Dyspnoea [None]
  - Heart rate decreased [None]
  - Urticaria [None]
  - Contrast media reaction [None]

NARRATIVE: CASE EVENT DATE: 20171026
